FAERS Safety Report 4909061-4 (Version None)
Quarter: 2006Q1

REPORT INFORMATION
  Report Type: 
  Country: None (occurrence: None)
  Receive Date: 20060213
  Receipt Date: 20060130
  Transmission Date: 20060701
  Serious: Yes (Hospitalization)
  Sender: FDA-Public Use
  Company Number: HQWYE582331JAN06

PATIENT
  Sex: Female
  Weight: 59 kg

DRUGS (6)
  1. ENBREL [Suspect]
     Indication: RHEUMATOID ARTHRITIS
     Route: 058
     Dates: start: 20020204, end: 20051101
  2. POTASSIUM [Concomitant]
     Dosage: 2 SPOONFULS DAILY
  3. LANSOPRAZOLE [Concomitant]
     Indication: PROPHYLAXIS
  4. ATENOLOL [Concomitant]
     Indication: HYPERTENSION
     Dosage: 50 MG 1/2 DAILY
  5. AMLODIPINE [Concomitant]
     Indication: HYPERTENSION
     Dosage: 50 MG 1/2 DAILY
  6. FLUOXETINE [Concomitant]
     Indication: DEPRESSION
     Dosage: 20 MG 1/2 DAILY

REACTIONS (4)
  - DIARRHOEA [None]
  - HYPOCALCAEMIA [None]
  - HYPONATRAEMIA [None]
  - HYPOTENSION [None]
